FAERS Safety Report 10900576 (Version 1)
Quarter: 2015Q1

REPORT INFORMATION
  Report Type: Spontaneous
  Country: BR (occurrence: BR)
  Receive Date: 20150310
  Receipt Date: 20150310
  Transmission Date: 20150721
  Serious: Yes (Other)
  Sender: FDA-Public Use
  Company Number: BR-ABBOTT-15X-020-1208704-00

PATIENT
  Sex: Female
  Weight: 66 kg

DRUGS (5)
  1. RITMONORM [Suspect]
     Active Substance: PROPAFENONE HYDROCHLORIDE
     Indication: ARRHYTHMIA
     Route: 048
     Dates: start: 201401
  2. OMEPRAZOLE. [Concomitant]
     Active Substance: OMEPRAZOLE
     Indication: GASTRIC ULCER
     Dosage: ONCE A DAY, IN THE MORNING
     Route: 048
     Dates: start: 2013
  3. ALL OTHER THERAPEUTIC PRODUCTS [Concomitant]
     Active Substance: UNSPECIFIED INGREDIENT
     Indication: BLOOD PRESSURE ABNORMAL
     Dosage: IN THE MORNING AND AT NIGHT (DAILY DOSE: 100 MG)
     Route: 048
     Dates: start: 201401
  4. CITALOPRAM [Concomitant]
     Active Substance: CITALOPRAM HYDROBROMIDE
     Indication: SLEEP DISORDER THERAPY
     Route: 048
     Dates: start: 201402
  5. RITMONORM [Suspect]
     Active Substance: PROPAFENONE HYDROCHLORIDE
     Route: 048

REACTIONS (1)
  - Arrhythmia [Recovering/Resolving]
